FAERS Safety Report 6538938-1 (Version None)
Quarter: 2010Q1

REPORT INFORMATION
  Report Type: 
  Country: None (occurrence: None)
  Receive Date: 20100115
  Receipt Date: 20100107
  Transmission Date: 20100710
  Serious: Yes (Other)
  Sender: FDA-Public Use
  Company Number: DE-ROCHE-678439

PATIENT
  Age: 25 Year
  Sex: Male
  Weight: 92 kg

DRUGS (1)
  1. TAMIFLU [Suspect]
     Indication: H1N1 INFLUENZA
     Dosage: DAILY DOSE: 150
     Route: 048
     Dates: start: 20091125, end: 20091126

REACTIONS (1)
  - HEPATITIS CHOLESTATIC [None]
